FAERS Safety Report 18728416 (Version 1)
Quarter: 2021Q1

REPORT INFORMATION
  Report Type: Spontaneous
  Country: US (occurrence: US)
  Receive Date: 20210112
  Receipt Date: 20210112
  Transmission Date: 20210419
  Serious: Yes (Other)
  Sender: FDA-Public Use
  Company Number: US-009507513-2101USA003714

PATIENT
  Age: 72 Year
  Sex: Female

DRUGS (3)
  1. FOSAMAX [Suspect]
     Active Substance: ALENDRONATE SODIUM
     Indication: OSTEOPOROSIS
     Dosage: ^AS PRESCRIBED AND IN A FORESEEABLE MANNER^
     Dates: start: 200901, end: 201105
  2. FOSAMAX [Suspect]
     Active Substance: ALENDRONATE SODIUM
     Indication: OSTEOPOROSIS
     Dosage: ^AS PRESCRIBED AND IN A FORESEEABLE MANNER^
     Route: 065
     Dates: start: 199607, end: 200808
  3. ACTONEL [Suspect]
     Active Substance: RISEDRONATE SODIUM
     Indication: OSTEOPOROSIS
     Dosage: ^AS PRESCRIBED AND IN A FORESEEABLE MANNER^
     Route: 065

REACTIONS (9)
  - Low turnover osteopathy [Unknown]
  - Pain [Unknown]
  - Fear of disease [Unknown]
  - Anxiety [Unknown]
  - Incorrect product administration duration [Unknown]
  - Quality of life decreased [Unknown]
  - Femur fracture [Unknown]
  - Injury [Unknown]
  - Emotional distress [Unknown]

NARRATIVE: CASE EVENT DATE: 20110514
